FAERS Safety Report 8108170-9 (Version None)
Quarter: 2011Q4

REPORT INFORMATION
  Report Type: 
  Country: None (occurrence: None)
  Receive Date: 20111223
  Receipt Date: 20110418
  Transmission Date: 20120403
  Serious: Yes (Other)
  Sender: FDA-Public Use
  Company Number: PHHY2011US33001

PATIENT

DRUGS (1)
  1. CLOZARIL [Suspect]
     Dosage: 200MG, 20 MG LESS EVERY WEEK UNTIL 0 MG

REACTIONS (9)
  - MIGRAINE [None]
  - HEADACHE [None]
  - FEELING ABNORMAL [None]
  - ABDOMINAL PAIN [None]
  - LOSS OF CONSCIOUSNESS [None]
  - AMNESIA [None]
  - COORDINATION ABNORMAL [None]
  - DARK CIRCLES UNDER EYES [None]
  - PAIN [None]
